FAERS Safety Report 8162683-2 (Version None)
Quarter: 2012Q1

REPORT INFORMATION
  Report Type: 
  Country: None (occurrence: None)
  Receive Date: 20120224
  Receipt Date: 20120216
  Transmission Date: 20120608
  Serious: Yes (Death)
  Sender: FDA-Public Use
  Company Number: KR-SANOFI-AVENTIS-200811142GDDC

PATIENT
  Age: 51 Year
  Sex: Female
  Weight: 97.5 kg

DRUGS (7)
  1. ADRIAMYCIN PFS [Suspect]
     Indication: BREAST CANCER FEMALE
     Route: 042
     Dates: start: 20070727, end: 20071001
  2. HYDROCHLOROTHIAZIDE [Concomitant]
  3. GINKGO BILOBA [Concomitant]
  4. DOCETAXEL [Suspect]
     Indication: BREAST CANCER FEMALE
     Route: 042
     Dates: start: 20070727, end: 20071001
  5. CYCLOPHOSPHAMIDE [Suspect]
     Indication: BREAST CANCER FEMALE
     Route: 042
     Dates: start: 20070727, end: 20071001
  6. AMLODIPINE [Concomitant]
  7. CANDESARTAN CILEXETIL [Concomitant]

REACTIONS (2)
  - HYDROCEPHALUS [None]
  - CONDITION AGGRAVATED [None]
